FAERS Safety Report 24759990 (Version 1)
Quarter: 2024Q4

REPORT INFORMATION
  Report Type: Spontaneous
  Country: PL (occurrence: PL)
  Receive Date: 20241220
  Receipt Date: 20241220
  Transmission Date: 20250115
  Serious: Yes (Other)
  Sender: BRACCO
  Company Number: None

PATIENT
  Age: 55 Year
  Sex: Female

DRUGS (3)
  1. PROHANCE [Suspect]
     Active Substance: GADOTERIDOL
     Indication: Magnetic resonance imaging
     Dosage: 17 ML, SINGLE
     Route: 042
     Dates: start: 20210129, end: 20210129
  2. CAPTOPRIL [Concomitant]
     Active Substance: CAPTOPRIL
     Dosage: 12.5 MG
     Route: 060
     Dates: start: 20210129, end: 20210129
  3. CLEMASTINUM WZF [Concomitant]
     Dosage: 2 ML
     Route: 042
     Dates: start: 20210129, end: 20210129

REACTIONS (4)
  - Malaise [Unknown]
  - Blood pressure increased [Unknown]
  - Loss of consciousness [Unknown]
  - Paraesthesia [Unknown]

NARRATIVE: CASE EVENT DATE: 20210129
